FAERS Safety Report 6093860-2 (Version None)
Quarter: 2009Q1

REPORT INFORMATION
  Report Type: 
  Country: None (occurrence: None)
  Receive Date: 20090226
  Receipt Date: 20090217
  Transmission Date: 20090719
  Serious: Yes (Death)
  Sender: FDA-Public Use
  Company Number: JP-PFIZER INC-2009160932

PATIENT

DRUGS (10)
  1. IRINOTECAN HCL [Suspect]
     Indication: RECTAL CANCER
     Dosage: 240 MG
     Route: 042
     Dates: start: 20081127, end: 20081211
  2. CETUXIMAB [Suspect]
     Indication: RECTAL CANCER
     Dosage: 600 MG, ONCE
     Route: 042
     Dates: start: 20081127, end: 20081127
  3. CETUXIMAB [Suspect]
     Dosage: 400 MG, ONCE WEEKLY
     Route: 042
     Dates: start: 20081204, end: 20081225
  4. FLUOROURACIL [Suspect]
     Indication: RECTAL CANCER
     Dosage: 500 MG, UNK
     Route: 040
     Dates: start: 20081127, end: 20081211
  5. FLUOROURACIL [Suspect]
     Dosage: 2000 MG, UNK
     Route: 041
     Dates: start: 20081127, end: 20081211
  6. FOLINIC ACID [Suspect]
     Indication: RECTAL CANCER
     Dosage: 300 MG, UNK
     Route: 042
     Dates: start: 20081127, end: 20081211
  7. CHLOR-TRIMETON [Concomitant]
     Indication: PREMEDICATION
     Dosage: 14 MG, EVERY  TIME BEFORE CETUXIMAB INFUSION
     Route: 042
     Dates: start: 20081127, end: 20081225
  8. DECADRON [Concomitant]
     Indication: PREMEDICATION
     Dosage: 8 MG, EVERY  TIME BEFORE CETUXIMAB INFUSION
     Route: 042
     Dates: start: 20081127, end: 20081225
  9. GRANISETRON [Concomitant]
     Indication: PROPHYLAXIS OF NAUSEA AND VOMITING
     Dosage: UNK
     Route: 042
     Dates: start: 20081127
  10. NAUZELIN [Concomitant]
     Dosage: UNK
     Route: 048
     Dates: start: 20081127

REACTIONS (1)
  - CARDIAC FAILURE [None]
